FAERS Safety Report 9744554 (Version 1)
Quarter: 2013Q4

REPORT INFORMATION
  Report Type: Spontaneous
  Country: FR (occurrence: FR)
  Receive Date: 20131210
  Receipt Date: 20131210
  Transmission Date: 20140711
  Serious: Yes (Other)
  Sender: FDA-Public Use
  Company Number: FR-ASTRAZENECA-2013SE89350

PATIENT
  Age: 16750 Day
  Sex: Male

DRUGS (3)
  1. XEROQUEL [Suspect]
     Indication: BIPOLAR I DISORDER
     Route: 048
     Dates: start: 201210
  2. DEPAKOTE [Concomitant]
     Indication: BIPOLAR DISORDER
     Route: 048
  3. NOCTAMIDE [Concomitant]
     Route: 048

REACTIONS (3)
  - Amnesia [Recovered/Resolved]
  - Theft [Unknown]
  - Intentional drug misuse [Not Recovered/Not Resolved]
